FAERS Safety Report 4319191-6 (Version None)
Quarter: 2004Q1

REPORT INFORMATION
  Report Type: 
  Country: None (occurrence: None)
  Receive Date: 20040315
  Receipt Date: 20031209
  Transmission Date: 20041129
  Serious: Yes (Hospitalization)
  Sender: FDA-Public Use
  Company Number: 2003189544US

PATIENT
  Age: 59 Year
  Sex: Male
  Weight: 111.6 kg

DRUGS (2)
  1. BEXTRA [Suspect]
     Dosage: 20 MG, QD, ORAL
     Route: 048
  2. ACETYLSALICYLIC ACID SRT [Suspect]
     Indication: PROPHYLAXIS
     Dosage: 81 MG, QD, ORAL
     Route: 048

REACTIONS (2)
  - DIZZINESS [None]
  - GASTROINTESTINAL HAEMORRHAGE [None]
